FAERS Safety Report 21795545 (Version 4)
Quarter: 2023Q1

REPORT INFORMATION
  Report Type: Report from Study
  Country: BE (occurrence: BE)
  Receive Date: 20221229
  Receipt Date: 20230206
  Transmission Date: 20230418
  Serious: Yes (Hospitalization)
  Sender: FDA-Public Use
  Company Number: BE-PFIZER INC-PV202200129800

PATIENT
  Age: 70 Year
  Sex: Male
  Weight: 91.9 kg

DRUGS (3)
  1. SASANLIMAB [Suspect]
     Active Substance: SASANLIMAB
     Indication: Non-small cell lung cancer
     Dosage: 225 MG, EVERY 3 WEEKS
     Route: 058
     Dates: start: 20220926, end: 20221130
  2. AXITINIB [Suspect]
     Active Substance: AXITINIB
     Indication: Non-small cell lung cancer
     Dosage: 5 MG, 1X/DAY
     Route: 048
     Dates: start: 20220926, end: 20221220
  3. SGN-TGT [Suspect]
     Active Substance: SGN-TGT
     Indication: Non-small cell lung cancer
     Dosage: 50 ML, EVERY 3 WEEKS
     Route: 042
     Dates: start: 20220926, end: 20221130

REACTIONS (1)
  - Hepatitis [Recovered/Resolved]

NARRATIVE: CASE EVENT DATE: 20221221
